FAERS Safety Report 5096371-6 (Version None)
Quarter: 2006Q3

REPORT INFORMATION
  Report Type: 
  Country: None (occurrence: None)
  Receive Date: 20060831
  Receipt Date: 20060823
  Transmission Date: 20061208
  Serious: Yes (Other)
  Sender: FDA-Public Use
  Company Number: 2006103654

PATIENT
  Age: 19 Month
  Sex: Male

DRUGS (6)
  1. ZYRTEC [Suspect]
     Indication: SEASONAL ALLERGY
     Dosage: 2.5 MG (2.5 MG, 1 IN 1 D)
     Dates: start: 20060808
  2. AMOXICILLIN [Concomitant]
  3. SODIUM CHLORIDE [Concomitant]
  4. HYDROXYZINE [Concomitant]
  5. SINGULAIR [Concomitant]
  6. ALBUTEROL [Concomitant]

REACTIONS (1)
  - SLEEP TERROR [None]
